FAERS Safety Report 20756886 (Version 2)
Quarter: 2022Q2

REPORT INFORMATION
  Report Type: Spontaneous
  Country: JP (occurrence: JP)
  Receive Date: 20220427
  Receipt Date: 20220525
  Transmission Date: 20220721
  Serious: Yes (Hospitalization, Other)
  Sender: FDA-Public Use
  Company Number: JP-ONO-2022JP010865

PATIENT
  Age: 78 Year
  Sex: Male
  Weight: 58 kg

DRUGS (8)
  1. SITAGLIPTIN PHOSPHATE [Suspect]
     Active Substance: SITAGLIPTIN PHOSPHATE
     Indication: Type 2 diabetes mellitus
     Dosage: 25 MG, EVERYDAY
     Route: 048
     Dates: start: 20140122
  2. SITAGLIPTIN PHOSPHATE [Suspect]
     Active Substance: SITAGLIPTIN PHOSPHATE
     Dosage: 50 MG, EVERYDAY
     Route: 048
     Dates: start: 20171024
  3. VOGLIBOSE [Suspect]
     Active Substance: VOGLIBOSE
     Indication: Type 2 diabetes mellitus
     Dosage: 0.2 MG, Q8H
     Route: 048
     Dates: start: 201611, end: 20171024
  4. VOGLIBOSE [Suspect]
     Active Substance: VOGLIBOSE
     Dosage: 0.3 MG, Q8H
     Route: 048
     Dates: start: 20171024, end: 20190327
  5. VOGLIBOSE [Suspect]
     Active Substance: VOGLIBOSE
     Dosage: 0.2 MG, Q8H
     Route: 048
     Dates: start: 20190327, end: 20190919
  6. GLICLAZIDE [Concomitant]
     Active Substance: GLICLAZIDE
     Indication: Type 2 diabetes mellitus
     Dosage: 40 MG, Q12H
     Route: 048
     Dates: start: 20100406, end: 20191029
  7. METFORMIN HYDROCHLORIDE [Concomitant]
     Active Substance: METFORMIN HYDROCHLORIDE
     Indication: Type 2 diabetes mellitus
     Dosage: 250 MG, Q8H
     Route: 048
     Dates: start: 20100406
  8. EPALRESTAT [Concomitant]
     Active Substance: EPALRESTAT
     Dosage: 50 MG, Q8H
     Route: 048
     Dates: start: 20150707

REACTIONS (1)
  - Pneumatosis intestinalis [Recovered/Resolved]

NARRATIVE: CASE EVENT DATE: 20190827
